FAERS Safety Report 10084643 (Version 1)
Quarter: 2014Q2

REPORT INFORMATION
  Report Type: Spontaneous
  Country: US (occurrence: US)
  Receive Date: 20140417
  Receipt Date: 20140417
  Transmission Date: 20141212
  Serious: Yes (Hospitalization)
  Sender: FDA-Public Use
  Company Number: US-DSJP-DSU-2014-104903

PATIENT
  Sex: 0

DRUGS (4)
  1. WELCHOL [Suspect]
     Indication: HYPERLIPIDAEMIA
     Dosage: 1875 MG, BID
     Route: 048
     Dates: start: 2012
  2. DIAZIDE                            /00007602/ [Concomitant]
     Indication: EAR DISORDER
     Dosage: UNK
     Route: 048
  3. ASPIRIN (E.C.) [Concomitant]
     Indication: PRODUCT USED FOR UNKNOWN INDICATION
     Dosage: 81 MG, QD
     Route: 048
  4. OMEPRAZOLE [Concomitant]
     Indication: GASTRIC DISORDER
     Dosage: UNK
     Route: 048

REACTIONS (1)
  - Fungal infection [Unknown]
